FAERS Safety Report 6804081-7 (Version None)
Quarter: 2010Q2

REPORT INFORMATION
  Report Type: 
  Country: None (occurrence: None)
  Receive Date: 20100628
  Receipt Date: 20060814
  Transmission Date: 20101027
  Serious: No
  Sender: FDA-Public Use
  Company Number: US-PFIZER INC-2006099849

PATIENT
  Sex: Female
  Weight: 50.8 kg

DRUGS (2)
  1. SUTENT [Suspect]
     Indication: RENAL CANCER
     Dosage: FREQUENCY:  QD  INTERVAL:  EVERYDAY
     Route: 065
     Dates: start: 20060726, end: 20060812
  2. ALL OTHER THERAPEUTIC PRODUCTS [Concomitant]
     Route: 065

REACTIONS (2)
  - ABDOMINAL PAIN UPPER [None]
  - DYSGEUSIA [None]
